FAERS Safety Report 4677931-0 (Version None)
Quarter: 2005Q2

REPORT INFORMATION
  Report Type: 
  Country: None (occurrence: None)
  Receive Date: 20050531
  Receipt Date: 20050518
  Transmission Date: 20051028
  Serious: Yes (Hospitalization)
  Sender: FDA-Public Use
  Company Number: PHEH2005US05780

PATIENT
  Sex: Male

DRUGS (2)
  1. FORADIL [Suspect]
     Dates: start: 20040501
  2. COMBIVENT [Suspect]

REACTIONS (2)
  - LUNG INFECTION [None]
  - STAPHYLOCOCCAL INFECTION [None]
